FAERS Safety Report 10418954 (Version 1)
Quarter: 2014Q2

REPORT INFORMATION
  Report Type: Report from Study
  Country: US (occurrence: None)
  Receive Date: 20140627
  Receipt Date: 20140627
  Transmission Date: 20141212
  Serious: No
  Sender: FDA-Public Use
  Company Number: CABO-14004318

PATIENT
  Age: 58 Year
  Sex: Male

DRUGS (6)
  1. COMETRIQ (CABOZANTINIB) CAPSULE [Suspect]
     Indication: RENAL CANCER
     Route: 048
     Dates: start: 20140426
  2. VITAMIN B6 (PYRIDOXINE HYDROCHLORIDE) [Concomitant]
  3. NORTRIPTYLINE HCL (NORTRIPTYLINE HYDROCHLORIDE) [Concomitant]
  4. AMBIEN (ZOLPIDEM TARTRATE) [Concomitant]
  5. NEXIUM (ESOMEPRAZOLE MAGNESIUM) [Concomitant]
  6. MANGOSTEEN [Concomitant]

REACTIONS (2)
  - Pain in extremity [None]
  - Off label use [None]
